FAERS Safety Report 10841116 (Version 1)
Quarter: 2015Q1

REPORT INFORMATION
  Report Type: Spontaneous
  Country: KR (occurrence: None)
  Receive Date: 20150218
  Receipt Date: 20150218
  Transmission Date: 20150721
  Serious: Yes (Hospitalization)
  Sender: FDA-Public Use
  Company Number: FK201500803

PATIENT
  Age: 15 Year
  Sex: Male

DRUGS (8)
  1. PREDNISOLONE (PREDNISOLONE) [Concomitant]
     Active Substance: PREDNISOLONE
  2. DOXORUBICIN (DOXORUBICIN) [Concomitant]
     Active Substance: DOXORUBICIN
  3. ETOPOSIDE (ETOPOSIDE) [Concomitant]
     Active Substance: ETOPOSIDE
  4. METHOTREXATE (MANUFACTURER UNKNOWN) (METHOTREXATE) (METHOTREXATE) [Suspect]
     Active Substance: METHOTREXATE
     Indication: BURKITT^S LEUKAEMIA
     Route: 037
  5. CYTARABINE (MANUFACTURER UNKNOWN) (CYTARABINE) (CYTARABINE) [Suspect]
     Active Substance: CYTARABINE
     Indication: BURKITT^S LEUKAEMIA
     Route: 037
  6. HYDROCORTISONE (HYDROCORTISONE) (HYDROCORTISONE) [Suspect]
     Active Substance: HYDROCORTISONE
     Indication: BURKITT^S LEUKAEMIA
     Route: 037
  7. CYCLOPHOSPHAMIDE (CYCLOPHOSPHAMIDE) [Concomitant]
     Active Substance: CYCLOPHOSPHAMIDE
  8. VINCRISTINE (VINCRISTINE) [Concomitant]
     Active Substance: VINCRISTINE

REACTIONS (6)
  - Myelopathy [None]
  - Cranial nerve disorder [None]
  - Respiratory failure [None]
  - Peripheral sensorimotor neuropathy [None]
  - Blood copper decreased [None]
  - Pneumonia [None]
